FAERS Safety Report 5760997-4 (Version None)
Quarter: 2008Q2

REPORT INFORMATION
  Report Type: 
  Country: None (occurrence: None)
  Receive Date: 20080606
  Receipt Date: 20080603
  Transmission Date: 20081010
  Serious: Yes (Hospitalization)
  Sender: FDA-Public Use
  Company Number: GB-ROCHE-568282

PATIENT
  Sex: Male
  Weight: 125 kg

DRUGS (4)
  1. XENICAL [Suspect]
     Indication: OBESITY
     Route: 048
     Dates: start: 20080108, end: 20080528
  2. RAMIPRIL [Concomitant]
     Route: 048
  3. AMLODIPINE [Concomitant]
     Route: 048
     Dates: end: 20080528
  4. BENDROFLUMETHIAZIDE [Concomitant]
     Indication: FLUID RETENTION
     Route: 048
     Dates: end: 20080528

REACTIONS (1)
  - TRANSIENT ISCHAEMIC ATTACK [None]
